FAERS Safety Report 6084813-9 (Version None)
Quarter: 2009Q1

REPORT INFORMATION
  Report Type: 
  Country: None (occurrence: None)
  Receive Date: 20090218
  Receipt Date: 20090202
  Transmission Date: 20090719
  Serious: Yes (Hospitalization)
  Sender: FDA-Public Use
  Company Number: 430004M09USA

PATIENT
  Age: 93 Year
  Sex: Male

DRUGS (2)
  1. NOVANTRONE [Suspect]
     Indication: PROSTATE CANCER
     Dosage: INTRAVENOUS
     Route: 042
  2. CETUXIMAB (CETUXIMAB) [Suspect]
     Indication: PROSTATE CANCER
     Dosage: 446 MG, 1 IN 1 WEEKS, INTRAVENOUS
     Route: 042
     Dates: start: 20081112, end: 20090126

REACTIONS (3)
  - DECREASED APPETITE [None]
  - FAILURE TO THRIVE [None]
  - NAUSEA [None]
